FAERS Safety Report 6945595-9 (Version None)
Quarter: 2010Q3

REPORT INFORMATION
  Report Type: 
  Country: None (occurrence: None)
  Receive Date: 20100827
  Receipt Date: 20100815
  Transmission Date: 20110219
  Serious: Yes (Other)
  Sender: FDA-Public Use
  Company Number: PHHY2010US54296

PATIENT
  Sex: Female

DRUGS (1)
  1. RECLAST [Suspect]
     Dosage: 5 MG PER YEAR
     Route: 042

REACTIONS (4)
  - FOOT FRACTURE [None]
  - MULTIPLE FRACTURES [None]
  - RIB FRACTURE [None]
  - WRIST FRACTURE [None]
